FAERS Safety Report 26202425 (Version 1)
Quarter: 2025Q4

REPORT INFORMATION
  Report Type: Spontaneous
  Country: US (occurrence: US)
  Receive Date: 20251226
  Receipt Date: 20251226
  Transmission Date: 20260117
  Serious: Yes (Hospitalization, Other)
  Sender: STRIDES
  Company Number: US-STRIDES ARCOLAB LIMITED-2025SP016030

PATIENT
  Age: 72 Year
  Sex: Female

DRUGS (2)
  1. CAPTOPRIL [Suspect]
     Active Substance: CAPTOPRIL
     Indication: Scleroderma renal crisis
     Dosage: UNK
     Route: 065
  2. CAPTOPRIL [Suspect]
     Active Substance: CAPTOPRIL
     Dosage: 25 MILLIGRAMS, TID DOSE INCREASED
     Route: 065

REACTIONS (2)
  - Azotaemia [Unknown]
  - Drug ineffective for unapproved indication [Unknown]
